FAERS Safety Report 24573184 (Version 3)
Quarter: 2024Q4

REPORT INFORMATION
  Report Type: Report from Study
  Country: US (occurrence: US)
  Receive Date: 20241101
  Receipt Date: 20241219
  Transmission Date: 20250115
  Serious: Yes (Hospitalization)
  Sender: EISAI
  Company Number: US-Eisai-EC-2024-175997

PATIENT
  Age: 55 Year
  Sex: Male
  Weight: 77.1 kg

DRUGS (11)
  1. LENVIMA [Suspect]
     Active Substance: LENVATINIB
     Indication: Renal cancer
     Route: 048
     Dates: start: 20240814, end: 202410
  2. LENVIMA [Suspect]
     Active Substance: LENVATINIB
     Route: 048
     Dates: start: 202412
  3. KEYTRUDA [Concomitant]
     Active Substance: PEMBROLIZUMAB
     Dosage: DOSE AND FREQUENCY UNKNOWN
  4. ELIQUIS [Concomitant]
     Active Substance: APIXABAN
     Dosage: DOSE AND FREQUENCY UNKNOWN
  5. DEXAMETHASONE [Concomitant]
     Active Substance: DEXAMETHASONE
     Dosage: DOSE AND FREQUENCY UNKNOWN
  6. LASIX [Concomitant]
     Active Substance: FUROSEMIDE
     Dosage: DOSE AND FREQUENCY UNKNOWN
  7. LEVOTHYROXINE [Concomitant]
     Active Substance: LEVOTHYROXINE
     Dosage: DOSE AND FREQUENCY UNKNOWN
  8. MARINOL [Concomitant]
     Active Substance: DRONABINOL
     Dosage: DOSE AND FREQUENCY UNKNOWN
  9. SODIUM CHLORIDE [Concomitant]
     Active Substance: SODIUM CHLORIDE
     Dosage: DOSE AND FREQUENCY UNKNOWN
  10. MEN^S 50 PLUS VITAMIN [Concomitant]
     Dosage: DOSE AND FREQUENCY UNKNOWN
  11. SODIUM CHLORIDE [Concomitant]
     Active Substance: SODIUM CHLORIDE
     Dosage: DOSE AND FREQUENCY UNKNOWN

REACTIONS (4)
  - Stomatitis [Unknown]
  - Weight decreased [Unknown]
  - Hypertension [Recovering/Resolving]
  - Thyroid disorder [Unknown]

NARRATIVE: CASE EVENT DATE: 20240101
